FAERS Safety Report 15041307 (Version 1)
Quarter: 2018Q2

REPORT INFORMATION
  Report Type: Spontaneous
  Country: DE (occurrence: DE)
  Receive Date: 20180621
  Receipt Date: 20180621
  Transmission Date: 20180711
  Serious: Yes (Hospitalization)
  Sender: FDA-Public Use
  Company Number: DE-TEVA-2018-DE-910966

PATIENT
  Age: 87 Year
  Sex: Male

DRUGS (10)
  1. METOHEXAL SUCC 47,5 MG [Concomitant]
     Route: 065
  2. NOVONORM EMRA 1,0 MG [Concomitant]
     Route: 065
  3. RAMILICH 5 MG [Concomitant]
     Route: 065
  4. ALLOPURINOL-RATIOPHARM 100 MG [Concomitant]
     Route: 065
  5. FUROSEMID-RATIOPHARM 40 MG [Suspect]
     Active Substance: FUROSEMIDE
     Route: 065
  6. DIGIMERCK MINOR 0,07 MG [Concomitant]
     Route: 065
  7. MARCUMAR [Concomitant]
     Active Substance: PHENPROCOUMON
     Route: 065
  8. XIPAMID HEXAL 40 MG [Suspect]
     Active Substance: XIPAMIDE
     Route: 065
  9. CORVATON RETARD 8 MG [Concomitant]
     Route: 065
  10. TAMSULOSIN STADA [Concomitant]
     Route: 065

REACTIONS (3)
  - Headache [Unknown]
  - Gait disturbance [Unknown]
  - Dizziness [Unknown]
